FAERS Safety Report 5090097-0 (Version None)
Quarter: 2006Q3

REPORT INFORMATION
  Report Type: 
  Country: None (occurrence: None)
  Receive Date: 20060828
  Receipt Date: 20060616
  Transmission Date: 20061208
  Serious: Yes (Death, Hospitalization)
  Sender: FDA-Public Use
  Company Number: JP-ROCHE-452180

PATIENT
  Age: 73 Year
  Sex: Male

DRUGS (6)
  1. PANALDINE [Suspect]
     Dosage: SECONDARY INDICATION: ANGINA PECTORIS.
     Route: 048
     Dates: start: 20050113, end: 20060217
  2. ASPIRIN [Concomitant]
     Dosage: SECONDARY INDICATION: ANGINA PECTORIS.
     Route: 048
     Dates: start: 20050113
  3. ISOSORBIDE MONONITRATE [Concomitant]
     Indication: ANGINA PECTORIS
     Route: 048
  4. ULCERMIN [Concomitant]
     Indication: GASTRITIS
     Route: 048
     Dates: end: 20060221
  5. RANITIDINE [Concomitant]
     Indication: GASTRITIS
     Route: 048
     Dates: start: 20050113, end: 20060221
  6. MUCOSTA [Concomitant]
     Indication: GASTRITIS
     Route: 048
     Dates: start: 20050113, end: 20060221

REACTIONS (4)
  - DEPRESSION [None]
  - HYPERPROTEINAEMIA [None]
  - LUPUS-LIKE SYNDROME [None]
  - MUSCULAR WEAKNESS [None]
